FAERS Safety Report 8319921-2 (Version None)
Quarter: 2012Q2

REPORT INFORMATION
  Report Type: 
  Country: None (occurrence: None)
  Receive Date: 20120427
  Receipt Date: 20120423
  Transmission Date: 20120825
  Serious: Yes (Other)
  Sender: FDA-Public Use
  Company Number: AT-B.I. PHARMACEUTICALS,INC./RIDGEFIELD-2012-EU-02281GD

PATIENT
  Age: 21 Year
  Sex: Female
  Weight: 65 kg

DRUGS (9)
  1. MIDAZOLAM [Suspect]
     Indication: ANAESTHESIA PROCEDURE
     Dosage: 7.5 MG
     Route: 048
  2. PROPOFOL [Suspect]
     Indication: ANAESTHESIA PROCEDURE
     Dosage: 200 MG BOLUS + 400 MG/H
  3. FENTANYL [Suspect]
     Indication: ANAESTHESIA PROCEDURE
     Dosage: 0.15 MG
  4. NEOSTIGMINE [Suspect]
     Indication: ANAESTHESIA PROCEDURE
     Dosage: 3.2 MG
  5. NITROUS OXIDE [Suspect]
     Indication: ANAESTHESIA PROCEDURE
     Dosage: 66%
  6. ROCURONIUM BROMIDE [Suspect]
     Indication: ANAESTHESIA PROCEDURE
     Dosage: 25 MG
  7. DICLOFENAC [Suspect]
     Indication: ANAESTHESIA PROCEDURE
     Dosage: 75 MG
  8. RANITIDINE [Suspect]
     Indication: ANAESTHESIA PROCEDURE
     Dosage: 50 MG
  9. GLYCOPYRROLATE [Suspect]
     Indication: ANAESTHESIA PROCEDURE
     Dosage: 0.6 MG

REACTIONS (2)
  - ATRIOVENTRICULAR DISSOCIATION [None]
  - DRUG INTERACTION [None]
